FAERS Safety Report 8732492 (Version 2)
Quarter: 2013Q1

REPORT INFORMATION
  Report Type: Spontaneous
  Country: BR (occurrence: BR)
  Receive Date: 20120820
  Receipt Date: 20130128
  Transmission Date: 20140127
  Serious: Yes (Hospitalization, Other)
  Sender: FDA-Public Use
  Company Number: PHHY2012BR071243

PATIENT
  Age: 67 None
  Sex: Female

DRUGS (5)
  1. DIOVAN HCT [Suspect]
     Indication: HYPERTENSION
     Dosage: 1 DF (160 MG VALS AND 12.5 MG HCTZ) QD
     Route: 048
  2. AMARYL [Concomitant]
     Indication: DIABETES MELLITUS
     Dosage: 1 DF DAILY
     Route: 048
  3. SELOZOK [Concomitant]
     Indication: HEART RATE INCREASED
     Dosage: 25 MG DAILY
     Route: 048
     Dates: start: 201208
  4. DIGESAN [Concomitant]
     Indication: ABDOMINAL DISCOMFORT
     Dosage: 1 DF DAILY
     Route: 048
  5. CHEMOTHERAPEUTICS [Concomitant]
     Dosage: UNK UKN, UNK
     Dates: start: 201208

REACTIONS (4)
  - Pancreatic carcinoma [Unknown]
  - Pancreatitis [Recovered/Resolved]
  - Diabetes mellitus [Not Recovered/Not Resolved]
  - Heart rate increased [Recovered/Resolved]
